FAERS Safety Report 16871124 (Version 1)
Quarter: 2019Q3

REPORT INFORMATION
  Report Type: Spontaneous
  Country: SY (occurrence: SY)
  Receive Date: 20190930
  Receipt Date: 20190930
  Transmission Date: 20191005
  Serious: Yes (Hospitalization, Other)
  Sender: FDA-Public Use
  Company Number: SY-ASTRAZENECA-2019SF36039

PATIENT
  Sex: Female

DRUGS (2)
  1. IRESSA [Suspect]
     Active Substance: GEFITINIB
     Indication: EGFR GENE MUTATION
     Dosage: 250.0MG UNKNOWN
     Route: 048
     Dates: start: 20190820
  2. IRESSA [Suspect]
     Active Substance: GEFITINIB
     Indication: NON-SMALL CELL LUNG CANCER
     Dosage: 250.0MG UNKNOWN
     Route: 048
     Dates: start: 20190820

REACTIONS (9)
  - Cardiac tamponade [Unknown]
  - Abdominal pain [Unknown]
  - Bronchospasm [Unknown]
  - Rash [Unknown]
  - Upper respiratory tract congestion [Unknown]
  - Pericardial effusion [Unknown]
  - Hydronephrosis [Unknown]
  - Muscle disorder [Unknown]
  - Pericarditis [Unknown]

NARRATIVE: CASE EVENT DATE: 20190903
